FAERS Safety Report 4981578-6 (Version None)
Quarter: 2006Q2

REPORT INFORMATION
  Report Type: 
  Country: None (occurrence: None)
  Receive Date: 20060425
  Receipt Date: 20060418
  Transmission Date: 20061013
  Serious: Yes (Hospitalization)
  Sender: FDA-Public Use
  Company Number: PHNU2006DE01694

PATIENT
  Age: 79 Year
  Sex: Female

DRUGS (5)
  1. LASIX [Suspect]
     Dosage: 20 MG, ONCE/SINGLE
     Dates: start: 20060315, end: 20060315
  2. BELOC ZOK [Suspect]
     Dosage: 25-0-47 MG
  3. METFORMIN [Concomitant]
  4. STARLIX [Concomitant]
  5. CO-DIOVAN [Suspect]
     Indication: HYPERTENSION
     Dosage: 1 DF, QD

REACTIONS (6)
  - BLOOD PRESSURE DECREASED [None]
  - DRUG INTERACTION [None]
  - FALL [None]
  - HUMERUS FRACTURE [None]
  - OEDEMA PERIPHERAL [None]
  - SYNCOPE [None]
